FAERS Safety Report 7611508-X (Version None)
Quarter: 2011Q3

REPORT INFORMATION
  Report Type: 
  Country: None (occurrence: None)
  Receive Date: 20110715
  Receipt Date: 20110706
  Transmission Date: 20111222
  Serious: Yes (Hospitalization)
  Sender: FDA-Public Use
  Company Number: DE-PFIZER INC-2011138146

PATIENT
  Age: 71 Year
  Sex: Female
  Weight: 85 kg

DRUGS (3)
  1. SUNITINIB MALATE [Suspect]
     Indication: METASTATIC RENAL CELL CARCINOMA
     Dosage: 50 MG, 1X/DAY
     Route: 048
     Dates: start: 20110515, end: 20110615
  2. ASPIRIN [Concomitant]
     Dosage: 100 UNK, 1X/DAY
  3. PANTOPRAZOLE [Concomitant]
     Dosage: 40 UNK, 1X/DAY

REACTIONS (3)
  - NEUTROPENIA [None]
  - COLITIS [None]
  - THROMBOCYTOPENIA [None]
